FAERS Safety Report 9005898 (Version 1)
Quarter: 2013Q1

REPORT INFORMATION
  Report Type: Spontaneous
  Country: CA (occurrence: CA)
  Receive Date: 20130109
  Receipt Date: 20130109
  Transmission Date: 20140127
  Serious: Yes (Other)
  Sender: FDA-Public Use
  Company Number: CA-AMGEN-CANSP2013000768

PATIENT
  Age: 76 Year
  Sex: Female

DRUGS (9)
  1. ENBREL [Suspect]
     Indication: RHEUMATOID ARTHRITIS
     Dosage: UNK
     Dates: start: 20121215
  2. METHOTREXATE [Concomitant]
     Dosage: UNK
  3. PLAVEX [Concomitant]
     Dosage: UNK
  4. LEUCOVORIN /00566701/ [Concomitant]
     Dosage: UNK
  5. METOPROLOL [Concomitant]
     Dosage: UNK
  6. SLOW K [Concomitant]
     Dosage: UNK
  7. LASIX                              /00032601/ [Concomitant]
     Dosage: UNK
  8. PREVACID [Concomitant]
     Dosage: UNK
  9. SERTRALINE [Concomitant]
     Dosage: UNK

REACTIONS (7)
  - Local swelling [Not Recovered/Not Resolved]
  - Neuropathy peripheral [Unknown]
  - Surgery [Unknown]
  - Drug effect incomplete [Not Recovered/Not Resolved]
  - Pain [Not Recovered/Not Resolved]
  - Arthralgia [Not Recovered/Not Resolved]
  - Ligament sprain [Not Recovered/Not Resolved]
